FAERS Safety Report 5931892-2 (Version None)
Quarter: 2008Q4

REPORT INFORMATION
  Report Type: 
  Country: None (occurrence: None)
  Receive Date: 20081027
  Receipt Date: 20081015
  Transmission Date: 20090506
  Serious: Yes (Other)
  Sender: FDA-Public Use
  Company Number: JP-PFIZER INC-2008086729

PATIENT
  Age: 30 Year
  Sex: Female

DRUGS (2)
  1. CHAMPIX [Suspect]
     Dosage: DAILY DOSE:1MG
     Route: 048
     Dates: start: 20080929
  2. OTHER NERVOUS SYSTEM DRUGS [Concomitant]

REACTIONS (2)
  - GAIT DEVIATION [None]
  - LOSS OF CONTROL OF LEGS [None]
